FAERS Safety Report 10006065 (Version 2)
Quarter: 2014Q1

REPORT INFORMATION
  Report Type: Spontaneous
  Country: US (occurrence: US)
  Receive Date: 20140313
  Receipt Date: 20140316
  Transmission Date: 20141002
  Serious: Yes (Life-Threatening)
  Sender: FDA-Public Use
  Company Number: US-JNJFOC-20140306422

PATIENT
  Age: 55 Year
  Sex: Male

DRUGS (4)
  1. XARELTO [Suspect]
     Indication: THROMBOSIS PROPHYLAXIS
     Route: 048
     Dates: start: 20130910, end: 20130911
  2. XARELTO [Suspect]
     Indication: HIP ARTHROPLASTY
     Route: 048
     Dates: start: 20130910, end: 20130911
  3. TRANEXAMIC ACID [Suspect]
     Indication: HIP ARTHROPLASTY
     Route: 042
     Dates: start: 20130909, end: 20130909
  4. NAPROXEN [Concomitant]
     Route: 048

REACTIONS (2)
  - Cardiac arrest [Recovered/Resolved]
  - Pulmonary embolism [Recovered/Resolved]
